FAERS Safety Report 20390645 (Version 1)
Quarter: 2022Q1

REPORT INFORMATION
  Report Type: Report from Study
  Country: CN (occurrence: CN)
  Receive Date: 20220128
  Receipt Date: 20220128
  Transmission Date: 20220423
  Serious: Yes (Other)
  Sender: FDA-Public Use
  Company Number: CN-BRISTOL-MYERS SQUIBB COMPANY-BMS-2022-010441

PATIENT
  Age: 31 Year
  Sex: Female

DRUGS (1)
  1. NIVOLUMAB [Suspect]
     Active Substance: NIVOLUMAB
     Indication: Gastric cancer
     Dosage: 140 MILLIGRAM, Q2WK
     Route: 041
     Dates: start: 20210908

REACTIONS (2)
  - Spinal cord compression [Unknown]
  - Paraplegia [Unknown]

NARRATIVE: CASE EVENT DATE: 20211129
